FAERS Safety Report 8085711-1 (Version None)
Quarter: 2012Q1

REPORT INFORMATION
  Report Type: 
  Country: None (occurrence: None)
  Receive Date: 20120128
  Receipt Date: 20110602
  Transmission Date: 20120608
  Serious: No
  Sender: FDA-Public Use
  Company Number: US-ABBOTT-11P-163-0730049-00

PATIENT
  Age: 65 Year
  Sex: Female

DRUGS (6)
  1. LIALDA [Concomitant]
     Indication: COLITIS ULCERATIVE
     Dosage: 1200MG DAILY
  2. HUMIRA [Suspect]
  3. ATENOLOL [Concomitant]
     Indication: HYPERTENSION
     Dosage: DAILY
  4. HUMIRA [Suspect]
     Dosage: DAY 15
  5. HUMIRA [Suspect]
     Indication: COLITIS ULCERATIVE
     Dosage: DAY 1
     Dates: start: 20110520
  6. SYNTHROID [Concomitant]
     Indication: HYPOTHYROIDISM
     Dosage: DAILY

REACTIONS (2)
  - INJECTION SITE ERYTHEMA [None]
  - RASH PRURITIC [None]
